FAERS Safety Report 16410418 (Version 3)
Quarter: 2019Q3

REPORT INFORMATION
  Report Type: Spontaneous
  Country: US (occurrence: US)
  Receive Date: 20190610
  Receipt Date: 20190809
  Transmission Date: 20191004
  Serious: No
  Sender: FDA-Public Use
  Company Number: US-PFIZER INC-2019245726

PATIENT
  Age: 78 Year
  Sex: Male
  Weight: 74.84 kg

DRUGS (2)
  1. ADVIL [Suspect]
     Active Substance: IBUPROFEN
     Indication: OSTEOARTHRITIS
     Dosage: 400 MG, UNK
     Route: 048
     Dates: start: 1990
  2. ADVIL [Suspect]
     Active Substance: IBUPROFEN
     Dosage: UNK, HAD TO TAKE UP TO 3 OR 4 TABLETS OR SOMETIMES 5 A DAY
     Route: 048
     Dates: end: 20190625

REACTIONS (3)
  - Therapeutic product effect decreased [Unknown]
  - Arthritis [Unknown]
  - Intentional product misuse [Unknown]
